FAERS Safety Report 16994172 (Version 1)
Quarter: 2019Q4

REPORT INFORMATION
  Report Type: Report from Study
  Country: BR (occurrence: BR)
  Receive Date: 20191105
  Receipt Date: 20191105
  Transmission Date: 20200122
  Serious: Yes (Hospitalization, Other)
  Sender: FDA-Public Use
  Company Number: NVSC2019BR022900

PATIENT
  Sex: Male

DRUGS (1)
  1. VOTRIENT [Suspect]
     Active Substance: PAZOPANIB HYDROCHLORIDE
     Indication: PRODUCT USED FOR UNKNOWN INDICATION
     Dosage: UNK
     Route: 065
     Dates: start: 201909

REACTIONS (10)
  - Ageusia [Unknown]
  - Vomiting [Unknown]
  - Pain [Unknown]
  - Bone cancer [Unknown]
  - Gait inability [Unknown]
  - Blood calcium decreased [Unknown]
  - Drug intolerance [Unknown]
  - Blood disorder [Unknown]
  - Malaise [Unknown]
  - Decreased appetite [Unknown]
